FAERS Safety Report 6637490-X (Version None)
Quarter: 2010Q1

REPORT INFORMATION
  Report Type: 
  Country: None (occurrence: None)
  Receive Date: 20100317
  Receipt Date: 20100308
  Transmission Date: 20100710
  Serious: Yes (Hospitalization)
  Sender: FDA-Public Use
  Company Number: US-BIOGENIDEC-2010BI001694

PATIENT
  Sex: Female

DRUGS (22)
  1. AVONEX [Suspect]
     Indication: MULTIPLE SCLEROSIS
     Route: 030
     Dates: end: 20030101
  2. AVONEX [Suspect]
     Route: 030
     Dates: start: 20030101
  3. BUSPIRONE HCL [Concomitant]
  4. CITALOPRAM HYDROBROMIDE [Concomitant]
     Route: 048
  5. NABUMETONE [Concomitant]
     Route: 048
  6. NASONEX [Concomitant]
  7. DYAZIDE [Concomitant]
     Route: 048
  8. AMOXICILLIN [Concomitant]
     Route: 048
  9. FLECTOR [Concomitant]
  10. FLONASE [Concomitant]
  11. FOLIC ACID [Concomitant]
     Route: 048
  12. LEXAPRO [Concomitant]
     Route: 048
  13. LORAZEPAM [Concomitant]
     Route: 048
  14. PREDNISONE [Concomitant]
     Route: 048
  15. PROAIR HFA [Concomitant]
  16. TRIAMTERENE AND HYDROCHLOROTHIAZIDE [Concomitant]
     Route: 048
  17. VITAMIN D [Concomitant]
     Route: 048
  18. WELLBUTRIN SR [Concomitant]
     Route: 048
  19. PNEUMOVAX 23 [Concomitant]
     Dates: start: 20040101
  20. PNEUMOVAX 23 [Concomitant]
     Dates: start: 20090616
  21. BENADRYL [Concomitant]
  22. TYLENOL-500 [Concomitant]

REACTIONS (10)
  - ANAEMIA HAEMOLYTIC AUTOIMMUNE [None]
  - ANXIETY [None]
  - EPIGASTRIC DISCOMFORT [None]
  - LUNG NEOPLASM [None]
  - MULTIPLE SCLEROSIS [None]
  - NAUSEA [None]
  - PULMONARY FIBROSIS [None]
  - SEASONAL ALLERGY [None]
  - VIRAL INFECTION [None]
  - WEIGHT DECREASED [None]
